FAERS Safety Report 10404133 (Version 1)
Quarter: 2014Q1

REPORT INFORMATION
  Report Type: Spontaneous
  Country: US (occurrence: None)
  Receive Date: 20131122
  Receipt Date: 20131122
  Transmission Date: 20141002
  Serious: Yes (Hospitalization)
  Sender: FDA-Public Use
  Company Number: E2B_00000666

PATIENT
  Age: 28 Year
  Sex: Female
  Weight: 62 kg

DRUGS (1)
  1. LEVONORGESTREL AND ETHINYL ESTRADIOL [Suspect]
     Indication: CONTRACEPTION
     Dosage: 1 DOSAGE FORMS (1 DOSAGE FORMS, DAILY), PER ORAL
     Route: 048
     Dates: start: 201209, end: 20130127

REACTIONS (1)
  - Pulmonary embolism [None]
